FAERS Safety Report 7018583-4 (Version None)
Quarter: 2010Q3

REPORT INFORMATION
  Report Type: 
  Country: None (occurrence: None)
  Receive Date: 20100928
  Receipt Date: 20100917
  Transmission Date: 20110219
  Serious: Yes (Hospitalization)
  Sender: FDA-Public Use
  Company Number: US-SANOFI-AVENTIS-2010SA042589

PATIENT
  Age: 35 Year
  Sex: Female
  Weight: 44 kg

DRUGS (10)
  1. SOLOSTAR [Suspect]
     Indication: TYPE 1 DIABETES MELLITUS
     Dates: start: 20080101, end: 20100626
  2. SOLOSTAR [Suspect]
     Dates: start: 20080101, end: 20100626
  3. SOLOSTAR [Suspect]
     Dates: start: 20120627, end: 20100708
  4. SOLOSTAR [Suspect]
     Dates: start: 20100709
  5. LANTUS [Suspect]
     Indication: TYPE 1 DIABETES MELLITUS
     Dosage: DOSE:14 UNIT(S)
     Route: 058
     Dates: start: 20020101, end: 20100626
  6. LANTUS [Suspect]
     Dosage: DOSE:14 UNIT(S)
     Route: 058
     Dates: start: 20020101, end: 20100626
  7. LANTUS [Suspect]
     Dosage: DOSE:14 UNIT(S)
     Route: 058
     Dates: start: 20100627, end: 20100708
  8. LANTUS [Suspect]
     Dosage: DOSE:14 UNIT(S)
     Route: 058
     Dates: start: 20100709
  9. NOVOLOG [Concomitant]
     Route: 042
     Dates: start: 20100701
  10. NOVOLOG [Concomitant]
     Dosage: DOSE:6 UNIT(S)

REACTIONS (6)
  - DEHYDRATION [None]
  - DIABETIC KETOACIDOSIS [None]
  - DRUG INEFFECTIVE [None]
  - HYPERGLYCAEMIA [None]
  - PAIN [None]
  - POLLAKIURIA [None]
